FAERS Safety Report 5919940-7 (Version None)
Quarter: 2008Q3

REPORT INFORMATION
  Report Type: 
  Country: None (occurrence: None)
  Receive Date: 20080909
  Receipt Date: 20070720
  Transmission Date: 20090109
  Serious: Yes (Hospitalization)
  Sender: FDA-Public Use
  Company Number: 163-20785-07061580

PATIENT
  Age: 66 Year
  Sex: Female

DRUGS (1)
  1. THALOMID [Suspect]
     Indication: MULTIPLE MYELOMA
     Dosage: 50-100MG, DAILY, ORAL
     Route: 048
     Dates: start: 20060330, end: 20070101

REACTIONS (2)
  - DISEASE PROGRESSION [None]
  - DRUG INEFFECTIVE [None]
